FAERS Safety Report 4814057-7 (Version None)
Quarter: 2005Q4

REPORT INFORMATION
  Report Type: 
  Country: None (occurrence: None)
  Receive Date: 20051028
  Receipt Date: 20051017
  Transmission Date: 20060501
  Serious: Yes (Hospitalization)
  Sender: FDA-Public Use
  Company Number: 2005UW15605

PATIENT
  Age: 58 Year
  Sex: Female

DRUGS (5)
  1. CRESTOR [Suspect]
     Route: 048
     Dates: start: 20050901
  2. ZANTAC [Concomitant]
  3. TOPAMAX [Concomitant]
  4. PERPHENAZINE [Concomitant]
  5. ZOMIG [Concomitant]

REACTIONS (3)
  - LOSS OF CONSCIOUSNESS [None]
  - RENAL FAILURE ACUTE [None]
  - RHABDOMYOLYSIS [None]
